FAERS Safety Report 23483107 (Version 2)
Quarter: 2024Q2

REPORT INFORMATION
  Report Type: Report from Study
  Country: US (occurrence: US)
  Receive Date: 20240205
  Receipt Date: 20240404
  Transmission Date: 20240716
  Serious: Yes (Hospitalization)
  Sender: FDA-Public Use
  Company Number: US-TAKEDA-2024TUS009685

PATIENT
  Age: 63 Year
  Sex: Male

DRUGS (3)
  1. IXAZOMIB [Suspect]
     Active Substance: IXAZOMIB
     Indication: Primary amyloidosis
     Dosage: 3 MILLIGRAM
     Route: 048
  2. IXAZOMIB [Suspect]
     Active Substance: IXAZOMIB
     Indication: Plasma cell myeloma
  3. POMALYST [Concomitant]
     Active Substance: POMALIDOMIDE
     Dosage: 3 MILLIGRAM
     Route: 065
     Dates: start: 20231207

REACTIONS (3)
  - Full blood count decreased [Recovered/Resolved]
  - Swelling [Recovered/Resolved]
  - Respiratory syncytial virus infection [Recovered/Resolved]

NARRATIVE: CASE EVENT DATE: 20240124
